FAERS Safety Report 22325087 (Version 1)
Quarter: 2023Q2

REPORT INFORMATION
  Report Type: Spontaneous
  Country: US (occurrence: US)
  Receive Date: 20230516
  Receipt Date: 20230516
  Transmission Date: 20230721
  Serious: No
  Sender: FDA-Public Use
  Company Number: US-PFIZER INC-PV202300086349

PATIENT
  Age: 37 Year
  Sex: Female

DRUGS (2)
  1. OXBRYTA [Suspect]
     Active Substance: VOXELOTOR
     Dosage: 500 MG, 3 TABLETS EVERY DAY
     Route: 048
  2. OXBRYTA [Suspect]
     Active Substance: VOXELOTOR
     Dosage: 500 MG, 3 TABLETS EVERY DAY
     Route: 048
     Dates: start: 202304

REACTIONS (1)
  - Weight decreased [Unknown]
